FAERS Safety Report 6707035-4 (Version None)
Quarter: 2010Q2

REPORT INFORMATION
  Report Type: 
  Country: None (occurrence: None)
  Receive Date: 20100423
  Receipt Date: 20091130
  Transmission Date: 20101027
  Serious: No
  Sender: FDA-Public Use
  Company Number: ALL1-2009-03864

PATIENT
  Age: 40 Year
  Sex: Male
  Weight: 95.2 kg

DRUGS (1)
  1. VYVANSE [Suspect]
     Indication: ATTENTION DEFICIT/HYPERACTIVITY DISORDER
     Dosage: 140 MG (2 X 70MG CAPSULES), 1X/DAY:QD, ORAL
     Route: 048
     Dates: start: 20080201

REACTIONS (3)
  - MOOD SWINGS [None]
  - OVERDOSE [None]
  - VENTRICULAR EXTRASYSTOLES [None]
